FAERS Safety Report 11265403 (Version 6)
Quarter: 2015Q4

REPORT INFORMATION
  Report Type: Spontaneous
  Country: US (occurrence: US)
  Receive Date: 20150713
  Receipt Date: 20151005
  Transmission Date: 20160304
  Serious: Yes (Hospitalization)
  Sender: FDA-Public Use
  Company Number: US-BIOGENIDEC-2015BI095655

PATIENT
  Age: 57 Year
  Sex: Female
  Weight: 57 kg

DRUGS (16)
  1. DECADRON [Concomitant]
     Active Substance: DEXAMETHASONE
     Dates: start: 2005
  2. CENTRUM [Concomitant]
     Active Substance: VITAMINS
  3. LEVOTHYROXINE. [Concomitant]
     Active Substance: LEVOTHYROXINE
  4. KLONOPIN [Concomitant]
     Active Substance: CLONAZEPAM
     Dates: start: 1985
  5. TRIMETHOPRIM. [Concomitant]
     Active Substance: TRIMETHOPRIM
     Dates: start: 1995
  6. BACLOFEN. [Concomitant]
     Active Substance: BACLOFEN
     Dates: start: 1985
  7. DULOXETINE. [Concomitant]
     Active Substance: DULOXETINE
     Dates: start: 2011
  8. VITAMIN D3 [Concomitant]
     Active Substance: CHOLECALCIFEROL
  9. TRAZODONE [Concomitant]
     Active Substance: TRAZODONE HYDROCHLORIDE
     Dates: start: 2010
  10. TECFIDERA [Suspect]
     Active Substance: DIMETHYL FUMARATE
     Indication: MULTIPLE SCLEROSIS
     Route: 048
     Dates: start: 2014
  11. COLACE [Concomitant]
     Active Substance: DOCUSATE SODIUM
  12. IBUPROFEN. [Concomitant]
     Active Substance: IBUPROFEN
  13. MACRODANTIN [Concomitant]
     Active Substance: NITROFURANTOIN
     Dates: start: 1995
  14. LIBRAX [Concomitant]
     Active Substance: CHLORDIAZEPOXIDE HYDROCHLORIDE\CLIDINIUM BROMIDE
  15. VITAMIN C [Concomitant]
     Active Substance: ASCORBIC ACID
  16. TEGRETOL [Concomitant]
     Active Substance: CARBAMAZEPINE
     Dates: start: 2011

REACTIONS (4)
  - Pruritus [Recovered/Resolved]
  - Flushing [Recovered/Resolved]
  - Bladder cancer [Not Recovered/Not Resolved]
  - Asthenia [Unknown]

NARRATIVE: CASE EVENT DATE: 2015
